FAERS Safety Report 6095259-1 (Version None)
Quarter: 2009Q1

REPORT INFORMATION
  Report Type: 
  Country: None (occurrence: None)
  Receive Date: 20090227
  Receipt Date: 20080320
  Transmission Date: 20090719
  Serious: No
  Sender: FDA-Public Use
  Company Number: A0711359A

PATIENT
  Age: 36 Year
  Sex: Female
  Weight: 59.1 kg

DRUGS (4)
  1. LAMICTAL [Suspect]
     Indication: BIPOLAR DISORDER
     Dosage: 300MG PER DAY
     Route: 048
  2. CLONAZEPAM [Concomitant]
  3. ADDERALL 10 [Concomitant]
  4. INVEGA [Concomitant]

REACTIONS (5)
  - DERMATOSIS [None]
  - HYPERKERATOSIS [None]
  - PARAKERATOSIS [None]
  - PITYRIASIS ROSEA [None]
  - RASH [None]
